FAERS Safety Report 5036147-9 (Version None)
Quarter: 2006Q2

REPORT INFORMATION
  Report Type: 
  Country: None (occurrence: None)
  Receive Date: 20060531
  Receipt Date: 20060227
  Transmission Date: 20061013
  Serious: No
  Sender: FDA-Public Use
  Company Number: PHEH2006US02683

PATIENT
  Age: 69 Year
  Sex: Male

DRUGS (1)
  1. EXJADE [Suspect]
     Indication: CHELATION THERAPY
     Dosage: 1500 MG QD
     Dates: start: 20060214, end: 20060227

REACTIONS (2)
  - PAIN IN EXTREMITY [None]
  - RASH [None]
